FAERS Safety Report 24445052 (Version 4)
Quarter: 2025Q1

REPORT INFORMATION
  Report Type: Report from Study
  Country: KR (occurrence: KR)
  Receive Date: 20241016
  Receipt Date: 20250310
  Transmission Date: 20250408
  Serious: Yes (Other)
  Sender: MYLAN
  Company Number: KR-MYLANLABS-2024M1093022

PATIENT
  Age: 42 Year
  Sex: Male
  Weight: 71 kg

DRUGS (4)
  1. PRETOMANID [Suspect]
     Active Substance: PRETOMANID
     Indication: Tuberculosis
     Dosage: 200 MILLIGRAM, QD
     Dates: start: 20240328, end: 20240923
  2. BEDAQUILINE [Suspect]
     Active Substance: BEDAQUILINE
     Indication: Tuberculosis
  3. LINEZOLID [Suspect]
     Active Substance: LINEZOLID
     Indication: Tuberculosis
  4. LINEZOLID [Suspect]
     Active Substance: LINEZOLID

REACTIONS (2)
  - Neuropathy peripheral [Not Recovered/Not Resolved]
  - COVID-19 [Recovered/Resolved]

NARRATIVE: CASE EVENT DATE: 20240729
